FAERS Safety Report 9117189 (Version 3)
Quarter: 2013Q2

REPORT INFORMATION
  Report Type: Spontaneous
  Country: JP (occurrence: JP)
  Receive Date: 20130128
  Receipt Date: 20130508
  Transmission Date: 20140414
  Serious: Yes (Hospitalization)
  Sender: FDA-Public Use
  Company Number: JP-ELI_LILLY_AND_COMPANY-JP201301005357

PATIENT
  Sex: Female

DRUGS (2)
  1. FORTEO [Suspect]
     Dosage: UNK
     Route: 058
  2. FORTEO [Suspect]
     Dosage: UNK
     Route: 058
     Dates: start: 201301

REACTIONS (4)
  - Bone disorder [Unknown]
  - Tremor [Unknown]
  - Waist circumference increased [Unknown]
  - Medication error [Unknown]
